FAERS Safety Report 24656890 (Version 1)
Quarter: 2024Q4

REPORT INFORMATION
  Report Type: Spontaneous
  Country: GB (occurrence: GB)
  Receive Date: 20241125
  Receipt Date: 20241125
  Transmission Date: 20250115
  Serious: Yes (Other)
  Sender: NOVO NORDISK
  Company Number: None

PATIENT
  Age: 54 Year
  Sex: Female
  Weight: 109 kg

DRUGS (3)
  1. RYBELSUS [Suspect]
     Active Substance: SEMAGLUTIDE
     Indication: Product used for unknown indication
     Dosage: 3 MG, QD (ONE TABLET DAILY, 30 MINUTES BEFORE FOOD)
     Dates: start: 20241009
  2. LACTIC ACID;SALICYLIC ACID [Concomitant]
     Indication: Product used for unknown indication
     Dosage: 10ML(16.7% PAINT,APPLY EACH DAY ONCE AT NIGHT - FOOT)
     Dates: start: 20241022
  3. ALBUTEROL [Concomitant]
     Active Substance: ALBUTEROL
     Indication: Product used for unknown indication
     Dosage: 1 DF (GHOURS)(ONE OR TWO PUFFS TO BE INHALED UP TO FOUR TIMES A DAY)
     Dates: start: 20241031

REACTIONS (3)
  - Dysphagia [Unknown]
  - Dyspnoea [Unknown]
  - Dyspnoea [Unknown]
